FAERS Safety Report 5812551-3 (Version None)
Quarter: 2008Q3

REPORT INFORMATION
  Report Type: 
  Country: None (occurrence: None)
  Receive Date: 20080711
  Receipt Date: 20080628
  Transmission Date: 20090109
  Serious: Yes (Other)
  Sender: FDA-Public Use
  Company Number: S08-GER-02329-01

PATIENT
  Age: 67 Year
  Sex: Male

DRUGS (4)
  1. CITALOPRAM HYDROBROMIDE [Suspect]
     Dates: start: 20080627, end: 20080627
  2. CITALOPRAM HYDROBROMIDE [Suspect]
  3. METOPROLOL TARTRATE [Suspect]
     Dosage: 1500 MG ONCE PO
     Route: 048
     Dates: start: 20080627, end: 20080627
  4. ZOLPIDEM [Suspect]
     Dosage: 16 TABLET ONCE PO
     Route: 048
     Dates: start: 20080627, end: 20080627

REACTIONS (8)
  - ATRIOVENTRICULAR BLOCK COMPLETE [None]
  - BLOOD CREATINE PHOSPHOKINASE INCREASED [None]
  - BRADYCARDIA [None]
  - GASTROINTESTINAL SOUNDS ABNORMAL [None]
  - INTENTIONAL OVERDOSE [None]
  - SUICIDAL BEHAVIOUR [None]
  - SUICIDE ATTEMPT [None]
  - VENTRICULAR FIBRILLATION [None]
